FAERS Safety Report 12975290 (Version 1)
Quarter: 2016Q4

REPORT INFORMATION
  Report Type: Spontaneous
  Country: US (occurrence: US)
  Receive Date: 20161125
  Receipt Date: 20161125
  Transmission Date: 20170207
  Serious: No
  Sender: FDA-Public Use
  Company Number: US-ASTRAZENECA-2016SF22651

PATIENT
  Sex: Male

DRUGS (3)
  1. PULMICORT FLEXHALER [Suspect]
     Active Substance: BUDESONIDE
     Indication: WHEEZING
     Dosage: 90.0UG UNKNOWN
     Route: 055
     Dates: start: 201604
  2. PROAIR HFA [Concomitant]
     Active Substance: ALBUTEROL SULFATE
  3. PULMICORT FLEXHALER [Suspect]
     Active Substance: BUDESONIDE
     Indication: COUGH
     Dosage: 90.0UG UNKNOWN
     Route: 055
     Dates: start: 201604

REACTIONS (4)
  - Off label use [Unknown]
  - Productive cough [Not Recovered/Not Resolved]
  - Product use issue [Unknown]
  - Asthma [Unknown]

NARRATIVE: CASE EVENT DATE: 201604
